FAERS Safety Report 23307892 (Version 1)
Quarter: 2023Q4

REPORT INFORMATION
  Report Type: Report from Study
  Country: US (occurrence: US)
  Receive Date: 20231218
  Receipt Date: 20231218
  Transmission Date: 20240110
  Serious: Yes (Hospitalization)
  Sender: FDA-Public Use
  Company Number: US-OTSUKA-2022_039407

PATIENT
  Age: 23 Year
  Sex: Female

DRUGS (2)
  1. TOLVAPTAN [Suspect]
     Active Substance: TOLVAPTAN
     Indication: Congenital cystic kidney disease
     Dosage: 45 MG
     Route: 065
     Dates: start: 20220730, end: 202310
  2. TOLVAPTAN [Suspect]
     Active Substance: TOLVAPTAN
     Dosage: 15 MG
     Route: 065
     Dates: start: 20220730, end: 202310

REACTIONS (5)
  - Ill-defined disorder [Unknown]
  - Autoimmune disorder [Unknown]
  - Influenza [Unknown]
  - Rheumatoid arthritis [Unknown]
  - Pollakiuria [Unknown]

NARRATIVE: CASE EVENT DATE: 20220905
